FAERS Safety Report 8045662-5 (Version None)
Quarter: 2012Q1

REPORT INFORMATION
  Report Type: 
  Country: None (occurrence: None)
  Receive Date: 20120113
  Receipt Date: 20120112
  Transmission Date: 20120608
  Serious: Yes (Life-Threatening)
  Sender: FDA-Public Use
  Company Number: JP-PFIZER INC-2011204987

PATIENT
  Age: 70 Year
  Sex: Male

DRUGS (6)
  1. VARENICLINE TARTRATE [Suspect]
     Indication: SMOKING CESSATION THERAPY
     Dosage: 0.5 MG, 1X/DAY
     Route: 048
     Dates: start: 20110609, end: 20110611
  2. SITAGLIPTIN PHOSPHATE [Concomitant]
     Dosage: UNK
  3. VARENICLINE TARTRATE [Suspect]
     Dosage: 1 MG, 2X/DAY
     Route: 048
     Dates: start: 20110616, end: 20110725
  4. VARENICLINE TARTRATE [Suspect]
     Dosage: 0.5 MG, 2X/DAY
     Route: 048
     Dates: start: 20110612, end: 20110615
  5. AROFUTO [Concomitant]
     Dosage: UNK
  6. SERMION [Concomitant]
     Dosage: UNK

REACTIONS (2)
  - ALTERED STATE OF CONSCIOUSNESS [None]
  - ROAD TRAFFIC ACCIDENT [None]
